FAERS Safety Report 8327901-6 (Version None)
Quarter: 2012Q2

REPORT INFORMATION
  Report Type: 
  Country: None (occurrence: None)
  Receive Date: 20120430
  Receipt Date: 20120418
  Transmission Date: 20120825
  Serious: Yes (Death)
  Sender: FDA-Public Use
  Company Number: UTC-017461

PATIENT
  Age: 61 Year
  Sex: Female
  Weight: 51.8 kg

DRUGS (6)
  1. REVATIO [Concomitant]
  2. DIGOXIN [Concomitant]
  3. DIURETICS (DIURETICS) [Concomitant]
  4. COUMADIN [Concomitant]
  5. LETAIRIS [Concomitant]
  6. REMODULIN [Suspect]
     Indication: PULMONARY HYPERTENSION
     Dosage: 8.64 UG/KG (0.006 UG/KG, 1 IN 1 MIN), SUBCUTANEOUS
     Route: 058
     Dates: start: 20120219

REACTIONS (1)
  - DEATH [None]
